FAERS Safety Report 4357938-3 (Version None)
Quarter: 2004Q2

REPORT INFORMATION
  Report Type: 
  Country: None (occurrence: None)
  Receive Date: 20040510
  Receipt Date: 20040503
  Transmission Date: 20050107
  Serious: Yes (Other)
  Sender: FDA-Public Use
  Company Number: 200412184BCC

PATIENT
  Age: 57 Year
  Sex: Male
  Weight: 75.7507 kg

DRUGS (3)
  1. ALEVE [Suspect]
     Indication: TENDON INJURY
     Dosage: 220 MG, BID, ORAL
     Route: 048
     Dates: start: 20040412, end: 20040502
  2. ASPIRIN [Concomitant]
  3. FISH OIL CAPSULES [Concomitant]

REACTIONS (1)
  - BLOOD PRESSURE INCREASED [None]
